FAERS Safety Report 7637612-8 (Version None)
Quarter: 2011Q3

REPORT INFORMATION
  Report Type: 
  Country: None (occurrence: None)
  Receive Date: 20110726
  Receipt Date: 20110720
  Transmission Date: 20111222
  Serious: Yes (Other)
  Sender: FDA-Public Use
  Company Number: PHHY2011GB65069

PATIENT
  Age: 42 Year
  Sex: Female

DRUGS (3)
  1. MIRTAZAPINE [Suspect]
     Dosage: UNK
     Dates: start: 20110624, end: 20110626
  2. DIAZEPAM [Concomitant]
  3. RISPERIDONE [Concomitant]
     Indication: MAJOR DEPRESSION

REACTIONS (3)
  - ANAPHYLACTIC REACTION [None]
  - DYSPNOEA [None]
  - INFECTIOUS PERITONITIS [None]
